FAERS Safety Report 25935594 (Version 1)
Quarter: 2025Q4

REPORT INFORMATION
  Report Type: Spontaneous
  Country: US (occurrence: None)
  Receive Date: 20251017
  Receipt Date: 20251017
  Transmission Date: 20260117
  Serious: Yes (Death)
  Sender: FDA-CTU
  Company Number: None

PATIENT
  Age: 66 Year
  Sex: Female

DRUGS (12)
  1. TOLVAPTAN [Suspect]
     Active Substance: TOLVAPTAN
     Indication: Hyponatraemia
     Dosage: FREQUENCY : 3 TIMES A WEEK;?
     Route: 048
     Dates: start: 20250926, end: 20251011
  2. ALLOPURINOL 100MG TABLETS [Concomitant]
  3. DILTIAZEM 120MG TABLETS [Concomitant]
  4. FERROUS SULFATE 325MG (5GR) TABS [Concomitant]
  5. LACTULOSE [Concomitant]
     Active Substance: LACTULOSE
  6. MINOCYCLINE HYDROCHLORIDE [Concomitant]
     Active Substance: MINOCYCLINE HYDROCHLORIDE
  7. PANTOPRAZOLE [Concomitant]
     Active Substance: PANTOPRAZOLE
  8. ASPIRIN 81 MG EC TABLETS [Concomitant]
  9. CLARITIN 10MG TABLETS [Concomitant]
  10. LOSARTAN [Concomitant]
     Active Substance: LOSARTAN
  11. VITAMIN B12 2000MCG ER TABLETS [Concomitant]
  12. MINOCYCLINE [Concomitant]
     Active Substance: MINOCYCLINE HYDROCHLORIDE

REACTIONS (2)
  - Hepatic cirrhosis [None]
  - Disease complication [None]

NARRATIVE: CASE EVENT DATE: 20251012
